FAERS Safety Report 6276944-5 (Version None)
Quarter: 2009Q3

REPORT INFORMATION
  Report Type: 
  Country: None (occurrence: None)
  Receive Date: 20090722
  Receipt Date: 20081027
  Transmission Date: 20100115
  Serious: No
  Sender: FDA-Public Use
  Company Number: US-BRISTOL-MYERS SQUIBB COMPANY-14384150

PATIENT
  Age: 53 Year
  Sex: Female
  Weight: 84 kg

DRUGS (3)
  1. COUMADIN [Suspect]
     Indication: CEREBROVASCULAR ACCIDENT
     Dosage: 1 DOSAGE FORM = 1 TABLET AT NIGHT; ALSO TAKEN COUMADIN 5MG TABS (1 TABLET QD).
  2. IMITREX [Concomitant]
  3. LOVASTATIN [Concomitant]

REACTIONS (1)
  - ARTHRALGIA [None]
